FAERS Safety Report 25598970 (Version 3)
Quarter: 2025Q3

REPORT INFORMATION
  Report Type: Spontaneous
  Country: JP (occurrence: JP)
  Receive Date: 20250724
  Receipt Date: 20250902
  Transmission Date: 20251021
  Serious: Yes (Other)
  Sender: JOHNSON AND JOHNSON
  Company Number: JP-JNJFOC-20250729218

PATIENT
  Age: 56 Year
  Sex: Male

DRUGS (1)
  1. INVEGA [Suspect]
     Active Substance: PALIPERIDONE
     Indication: Product used for unknown indication
     Route: 048
     Dates: end: 20250715

REACTIONS (4)
  - Renal impairment [Recovered/Resolved]
  - Cellulitis [Unknown]
  - Heat illness [Unknown]
  - Dehydration [Unknown]

NARRATIVE: CASE EVENT DATE: 20250714
